FAERS Safety Report 12521591 (Version 1)
Quarter: 2016Q3

REPORT INFORMATION
  Report Type: Report from Study
  Country: US (occurrence: US)
  Receive Date: 20160701
  Receipt Date: 20160701
  Transmission Date: 20161109
  Serious: Yes (Other)
  Sender: FDA-Public Use
  Company Number: US-AMGEN-USASL2016083260

PATIENT
  Age: 57 Year
  Sex: Female

DRUGS (1)
  1. ENBREL [Suspect]
     Active Substance: ETANERCEPT
     Indication: RHEUMATOID ARTHRITIS
     Dosage: 25 MG, 2 TIMES WEEKLY
     Route: 065
     Dates: start: 201005

REACTIONS (10)
  - Pulmonary infarction [Unknown]
  - Pneumonia [Unknown]
  - Cardiac disorder [Unknown]
  - Fallopian tube cyst [Unknown]
  - Ovarian cyst [Unknown]
  - Amnesia [Unknown]
  - Bursitis [Unknown]
  - Condition aggravated [Unknown]
  - Adverse event [Unknown]
  - Skeletal injury [Unknown]

NARRATIVE: CASE EVENT DATE: 201606
